FAERS Safety Report 9210681 (Version 1)
Quarter: 2013Q2

REPORT INFORMATION
  Report Type: Spontaneous
  Country: US (occurrence: US)
  Receive Date: 20130404
  Receipt Date: 20130404
  Transmission Date: 20140414
  Serious: Yes (Other)
  Sender: FDA-Public Use
  Company Number: CHPA2013US005736

PATIENT
  Age: 55 Year
  Sex: Female

DRUGS (5)
  1. VOLTAREN GEL [Suspect]
     Indication: BACK PAIN
     Dosage: UNK, UNK
     Route: 061
     Dates: start: 20130205, end: 20130326
  2. CYCLOBENZAPRINE HYDROCHLORIDE [Concomitant]
     Dosage: UNK
     Dates: start: 20121116
  3. PREDNISONE [Concomitant]
  4. BYSTOLIC [Concomitant]
  5. OXYCODONE / ACETAMINOPHEN [Concomitant]

REACTIONS (11)
  - Dysuria [Recovered/Resolved]
  - Renal impairment [Recovered/Resolved]
  - Weight increased [Recovered/Resolved]
  - Local swelling [Recovered/Resolved]
  - Hypersomnia [Unknown]
  - Weight decreased [Recovered/Resolved]
  - Increased appetite [Unknown]
  - Off label use [Unknown]
  - Therapeutic response unexpected [Unknown]
  - Rash [Recovering/Resolving]
  - Drug administered at inappropriate site [Unknown]
